FAERS Safety Report 8916030 (Version 1)
Quarter: 2012Q4

REPORT INFORMATION
  Report Type: 
  Country: SE (occurrence: SE)
  Receive Date: 20121119
  Receipt Date: 20121119
  Transmission Date: 20130627
  Serious: Yes (Hospitalization)
  Sender: FDA-Public Use
  Company Number: SE-PFIZER INC-2012284517

PATIENT
  Age: 47 Year
  Sex: Female
  Weight: 59.6 kg

DRUGS (8)
  1. GENOTROPIN [Suspect]
     Indication: GROWTH HORMONE DEFICIENCY
     Dosage: 1.2 mg, 1x/day,7 injections/week
     Route: 058
     Dates: start: 20010213
  2. DHEA [Concomitant]
     Indication: LUTEINISING HORMONE DEFICIENCY
     Dosage: UNK
     Dates: start: 20000816
  3. DHEA [Concomitant]
     Indication: FOLLICLE-STIMULATING HORMONE DEFICIENCY
  4. CORTONE [Concomitant]
     Indication: ACTH DECREASED
     Dosage: UNK
     Dates: start: 19931215
  5. LEVAXIN [Concomitant]
     Indication: THYROID DISORDER
     Dosage: UNK
     Dates: start: 19931215
  6. FLORINEF [Concomitant]
     Indication: ACTH DECREASED
     Dosage: UNK
     Dates: start: 19950327
  7. PREDNISOLON [Concomitant]
     Indication: ACTH DECREASED
     Dosage: UNK
     Dates: start: 19960305
  8. KALIUM [Concomitant]
     Indication: ACTH DECREASED
     Dosage: UNK
     Dates: start: 19960423

REACTIONS (2)
  - Abdominal pain upper [Unknown]
  - Blood cortisol decreased [Unknown]
